FAERS Safety Report 7607012-5 (Version None)
Quarter: 2011Q3

REPORT INFORMATION
  Report Type: 
  Country: None (occurrence: None)
  Receive Date: 20110706
  Receipt Date: 20110628
  Transmission Date: 20111222
  Serious: Yes (Hospitalization)
  Sender: FDA-Public Use
  Company Number: HCTZ-11-03

PATIENT
  Age: 76 Year
  Sex: Female

DRUGS (3)
  1. TRIAMTERENE [Concomitant]
  2. HYDROCHLOROTHIAZIDE [Suspect]
     Indication: HYPERTENSION
  3. FUROSEMIDE [Concomitant]

REACTIONS (2)
  - HYPONATRAEMIA [None]
  - STRESS CARDIOMYOPATHY [None]
